FAERS Safety Report 14667888 (Version 2)
Quarter: 2018Q3

REPORT INFORMATION
  Report Type: Spontaneous
  Country: JP (occurrence: JP)
  Receive Date: 20180322
  Receipt Date: 20180710
  Transmission Date: 20181010
  Serious: Yes (Other)
  Sender: FDA-Public Use
  Company Number: PHJP2018JP006394

PATIENT
  Age: 47 Year
  Sex: Female

DRUGS (2)
  1. TRAZODONE [Suspect]
     Active Substance: TRAZODONE HYDROCHLORIDE
     Indication: SCHIZOPHRENIA
     Dosage: UNK
     Route: 048
  2. TEGRETOL [Suspect]
     Active Substance: CARBAMAZEPINE
     Indication: SCHIZOPHRENIA
     Dosage: UNK
     Route: 048

REACTIONS (7)
  - Rhabdomyolysis [Recovering/Resolving]
  - Pyrexia [Recovered/Resolved]
  - Serotonin syndrome [Unknown]
  - Tachycardia [Unknown]
  - Hypertension [Unknown]
  - Overdose [Unknown]
  - Altered state of consciousness [Unknown]
